FAERS Safety Report 18341275 (Version 20)
Quarter: 2025Q1

REPORT INFORMATION
  Report Type: Report from Study
  Country: US (occurrence: US)
  Receive Date: 20201003
  Receipt Date: 20250205
  Transmission Date: 20250408
  Serious: Yes (Other)
  Sender: TAKEDA
  Company Number: US-SHIRE-US202032126

PATIENT
  Age: 75 Year
  Sex: Female
  Weight: 83 kg

DRUGS (29)
  1. HUMAN IMMUNOGLOBULIN G [Suspect]
     Active Substance: HUMAN IMMUNOGLOBULIN G
     Indication: Immunodeficiency common variable
     Dosage: 17 GRAM, 1/WEEK
     Dates: start: 20190813
  2. HUMAN IMMUNOGLOBULIN G [Suspect]
     Active Substance: HUMAN IMMUNOGLOBULIN G
     Dosage: 15 GRAM, 3/MONTH
  3. HUMAN IMMUNOGLOBULIN G [Suspect]
     Active Substance: HUMAN IMMUNOGLOBULIN G
  4. ESTRADIOL [Concomitant]
     Active Substance: ESTRADIOL
  5. KETOCONAZOLE [Concomitant]
     Active Substance: KETOCONAZOLE
  6. HYOSCYAMINE SULFATE [Concomitant]
     Active Substance: HYOSCYAMINE SULFATE
  7. ALBUTEROL SULFATE [Concomitant]
     Active Substance: ALBUTEROL SULFATE
  8. LEVOTHYROXINE SODIUM [Concomitant]
     Active Substance: LEVOTHYROXINE SODIUM
  9. HYDROCHLOROTHIAZIDE [Concomitant]
     Active Substance: HYDROCHLOROTHIAZIDE
  10. FLUTICASONE PROPIONATE [Concomitant]
     Active Substance: FLUTICASONE PROPIONATE
  11. ZYRTEC [Concomitant]
     Active Substance: CETIRIZINE HYDROCHLORIDE
  12. PEPCID [Concomitant]
     Active Substance: FAMOTIDINE
  13. METHENAMINE HIPPURATE [Concomitant]
     Active Substance: METHENAMINE HIPPURATE
  14. CRANBERRY [Concomitant]
     Active Substance: CRANBERRY
  15. WIXELA INHUB [Concomitant]
     Active Substance: FLUTICASONE PROPIONATE\SALMETEROL XINAFOATE
  16. SYSTANE (HYPROMELLOSE 2910 (4000 MPA.S)) [Concomitant]
     Active Substance: HYPROMELLOSE 2910 (4000 MPA.S)
  17. HYDROCORTISONE [Concomitant]
     Active Substance: HYDROCORTISONE
  18. METAMUCIL [Concomitant]
     Active Substance: PLANTAGO SEED
  19. LYSINE [Concomitant]
     Active Substance: LYSINE
  20. ADVAIR HFA [Concomitant]
     Active Substance: FLUTICASONE PROPIONATE\SALMETEROL XINAFOATE
  21. ACETAMINOPHEN [Concomitant]
     Active Substance: ACETAMINOPHEN
  22. DIPHENHYDRAMINE [Concomitant]
     Active Substance: DIPHENHYDRAMINE
  23. EPINEPHRINE [Concomitant]
     Active Substance: EPINEPHRINE
  24. Lmx [Concomitant]
  25. RANITIDINE HYDROCHLORIDE [Concomitant]
     Active Substance: RANITIDINE HYDROCHLORIDE
  26. ASPIRIN [Concomitant]
     Active Substance: ASPIRIN
  27. FLONASE [Concomitant]
     Active Substance: FLUTICASONE PROPIONATE
  28. DIPHENHYDRAMINE HYDROCHLORIDE [Concomitant]
     Active Substance: DIPHENHYDRAMINE HYDROCHLORIDE
  29. ALBUTEROL SULFATE [Concomitant]
     Active Substance: ALBUTEROL SULFATE

REACTIONS (24)
  - Thrombosis [Unknown]
  - Cystitis [Unknown]
  - Seasonal allergy [Unknown]
  - Dry skin [Unknown]
  - COVID-19 [Unknown]
  - Gastrooesophageal reflux disease [Unknown]
  - Multiple allergies [Unknown]
  - Fall [Unknown]
  - Weight decreased [Unknown]
  - Arthropod bite [Unknown]
  - Allergy to arthropod sting [Unknown]
  - Incorrect drug administration rate [Unknown]
  - Inappropriate schedule of product administration [Unknown]
  - Back disorder [Unknown]
  - Nerve compression [Unknown]
  - Sleep deficit [Unknown]
  - Device infusion issue [Unknown]
  - Sinusitis [Unknown]
  - Asthma [Unknown]
  - Influenza [Unknown]
  - Upper respiratory tract infection [Unknown]
  - Haematoma [Unknown]
  - Feeling abnormal [Unknown]
  - Back pain [Unknown]

NARRATIVE: CASE EVENT DATE: 20220401
